FAERS Safety Report 4703018-4 (Version None)
Quarter: 2005Q2

REPORT INFORMATION
  Report Type: 
  Country: None (occurrence: None)
  Receive Date: 20050628
  Receipt Date: 20050628
  Transmission Date: 20051028
  Serious: Yes (Death)
  Sender: FDA-Public Use
  Company Number: None

PATIENT
  Age: 58 Year
  Sex: Female
  Weight: 121.1104 kg

DRUGS (14)
  1. DARVOCET-N 100 [Suspect]
     Indication: PAIN
  2. ZOLOFT [Suspect]
     Indication: DEPRESSION
  3. BUSPAR [Concomitant]
  4. SYNTHROID [Concomitant]
  5. OS-CAL [Concomitant]
  6. PREMARIN [Concomitant]
  7. PREVACID [Concomitant]
  8. QUESTRON [Concomitant]
  9. HYOSCYAMINE [Concomitant]
  10. VALIUM [Concomitant]
  11. FOLIC ACID [Concomitant]
  12. HYDROCHLOROTHIAZIDE [Concomitant]
  13. TRAZEDONE [Concomitant]
  14. PROSOM [Concomitant]

REACTIONS (2)
  - DRUG INTERACTION [None]
  - OVERDOSE [None]
